FAERS Safety Report 23449034 (Version 3)
Quarter: 2024Q1

REPORT INFORMATION
  Report Type: Spontaneous
  Country: US (occurrence: US)
  Receive Date: 20240128
  Receipt Date: 20240219
  Transmission Date: 20240410
  Serious: No
  Sender: FDA-Public Use
  Company Number: US-BAUSCHBL-2024BNL000852

PATIENT
  Age: 62 Year
  Sex: Female

DRUGS (3)
  1. XIIDRA [Suspect]
     Active Substance: LIFITEGRAST
     Indication: Product used for unknown indication
     Route: 047
     Dates: start: 2022, end: 20231108
  2. XIIDRA [Suspect]
     Active Substance: LIFITEGRAST
     Route: 047
     Dates: start: 20231109, end: 202311
  3. XIIDRA [Suspect]
     Active Substance: LIFITEGRAST
     Route: 047

REACTIONS (9)
  - Eye irritation [Unknown]
  - Lacrimation increased [Unknown]
  - Eye disorder [Unknown]
  - Product use issue [Unknown]
  - Product packaging quantity issue [Unknown]
  - Product quality issue [Unknown]
  - Patient dissatisfaction with treatment [Unknown]
  - Product distribution issue [Unknown]
  - Product dose omission in error [Unknown]

NARRATIVE: CASE EVENT DATE: 20231109
